FAERS Safety Report 19602271 (Version 1)
Quarter: 2021Q3

REPORT INFORMATION
  Report Type: Report from Study
  Country: None (occurrence: ES)
  Receive Date: 20210724
  Receipt Date: 20210724
  Transmission Date: 20211014
  Serious: Yes (Hospitalization)
  Sender: FDA-Public Use
  Company Number: ES-ABBVIE-21K-144-4003465-00

PATIENT
  Age: 75 Year
  Sex: Male

DRUGS (5)
  1. INTERFERON BETA?1B [Concomitant]
     Active Substance: INTERFERON BETA-1B
     Indication: COVID-19
     Dosage: (30559A)
     Route: 058
     Dates: start: 20200324, end: 20200324
  2. LOPINAVIR/RITONAVIR [Suspect]
     Active Substance: LOPINAVIR\RITONAVIR
     Indication: COVID-19
     Route: 048
     Dates: start: 20200324, end: 20200327
  3. BEMIPARINA SODICA [Concomitant]
     Indication: PRODUCT USED FOR UNKNOWN INDICATION
     Dosage: (2817SO)
     Route: 058
     Dates: start: 20200324, end: 20200327
  4. HIDROXICLOROQUINA SULFATO [Suspect]
     Active Substance: HYDROXYCHLOROQUINE SULFATE
     Indication: COVID-19
     Dosage: (2143SU)
     Route: 048
     Dates: start: 20200324, end: 20200326
  5. AMOXILLINA ACIDO CLAV. [Concomitant]
     Indication: PRODUCT USED FOR UNKNOWN INDICATION
     Route: 042
     Dates: start: 20200324, end: 20200326

REACTIONS (2)
  - Off label use [Unknown]
  - Long QT syndrome [Recovered/Resolved]

NARRATIVE: CASE EVENT DATE: 20200325
